FAERS Safety Report 7712606-2 (Version None)
Quarter: 2011Q3

REPORT INFORMATION
  Report Type: 
  Country: None (occurrence: None)
  Receive Date: 20110826
  Receipt Date: 20110818
  Transmission Date: 20111222
  Serious: Yes (Hospitalization)
  Sender: FDA-Public Use
  Company Number: US-JNJFOC-20110809027

PATIENT
  Sex: Female
  Weight: 127.01 kg

DRUGS (7)
  1. REMICADE [Suspect]
     Route: 042
     Dates: start: 20060101, end: 20110101
  2. METHOTREXATE [Concomitant]
     Indication: ARTHRITIS
     Route: 048
     Dates: start: 20060101
  3. REMICADE [Suspect]
     Indication: PSORIATIC ARTHROPATHY
     Route: 042
     Dates: start: 20110101
  4. METFORMIN HCL [Concomitant]
     Indication: DIABETES MELLITUS
     Route: 048
     Dates: start: 20050101
  5. LISINOPRIL [Concomitant]
     Indication: BLOOD PRESSURE
     Dosage: DOSE REPORTED AS 10-12.5 MG
     Route: 048
  6. LEVOTHYROXINE SODIUM [Concomitant]
     Indication: THYROID DISORDER
     Route: 048
     Dates: start: 19730101
  7. FOLIC ACID [Concomitant]
     Indication: ARTHRITIS
     Route: 048

REACTIONS (7)
  - CARTILAGE INJURY [None]
  - BLOOD CHOLESTEROL INCREASED [None]
  - JOINT INJURY [None]
  - FALL [None]
  - THERAPEUTIC RESPONSE DECREASED [None]
  - CHONDROPATHY [None]
  - PAIN [None]
